FAERS Safety Report 5912287-4 (Version None)
Quarter: 2008Q4

REPORT INFORMATION
  Report Type: 
  Country: None (occurrence: None)
  Receive Date: 20081008
  Receipt Date: 20080930
  Transmission Date: 20090506
  Serious: Yes (Other)
  Sender: FDA-Public Use
  Company Number: US-JNJCH-2008022760

PATIENT
  Age: 59 Year
  Sex: Female
  Weight: 61.2 kg

DRUGS (1)
  1. LISTERINE TOOTH DEFENSE [Suspect]
     Indication: DENTAL DISORDER PROPHYLAXIS
     Dosage: TEXT:10 ML TWICE DAILY
     Route: 048

REACTIONS (3)
  - AGEUSIA [None]
  - APPLICATION SITE IRRITATION [None]
  - PARAESTHESIA ORAL [None]
